FAERS Safety Report 24585351 (Version 1)
Quarter: 2024Q4

REPORT INFORMATION
  Report Type: Spontaneous
  Country: US (occurrence: None)
  Receive Date: 20241106
  Receipt Date: 20241106
  Transmission Date: 20250115
  Serious: Yes (Death)
  Sender: Public
  Company Number: None

PATIENT
  Age: 85 Year
  Sex: Female

DRUGS (11)
  1. XGEVA [Suspect]
     Active Substance: DENOSUMAB
     Indication: Product used for unknown indication
     Dosage: OTHER FREQUENCY : INJECT 120 MG SUBCUTANEOUSLY EVERY MONTH;?
     Dates: start: 20230411
  2. ALLOPURINOL TAB 100MG [Concomitant]
  3. AMLODIPINE TAB 5MG [Concomitant]
  4. ANTI-DIARRHE TAB 2MG [Concomitant]
  5. ASPIRIN [Concomitant]
     Active Substance: ASPIRIN
  6. AZITHROMYCIN [Concomitant]
     Active Substance: AZITHROMYCIN
  7. CARVEDILOL TAB 25MG [Concomitant]
  8. DICLOFENAC [Concomitant]
     Active Substance: DICLOFENAC
  9. DOXORUBICIN [Concomitant]
     Active Substance: DOXORUBICIN
  10. FAMOTIDINE [Concomitant]
  11. FERROUS SULF TAB 325MG EC [Concomitant]

REACTIONS (1)
  - Death [None]

NARRATIVE: CASE EVENT DATE: 20241031
